FAERS Safety Report 7155973-3 (Version None)
Quarter: 2010Q4

REPORT INFORMATION
  Report Type: 
  Country: None (occurrence: None)
  Receive Date: 20101214
  Receipt Date: 20101130
  Transmission Date: 20110411
  Serious: Yes (Hospitalization)
  Sender: FDA-Public Use
  Company Number: DE-JNJFOC-20101105328

PATIENT
  Sex: Female
  Weight: 75 kg

DRUGS (14)
  1. PALEXIA RETARD [Suspect]
     Route: 065
  2. PALEXIA RETARD [Suspect]
     Indication: PAIN
     Route: 065
  3. ACETYLSALICYLIC ACID [Concomitant]
     Indication: PRODUCT USED FOR UNKNOWN INDICATION
  4. TORASEMID [Concomitant]
     Indication: PRODUCT USED FOR UNKNOWN INDICATION
  5. XIPAMID [Concomitant]
     Indication: PRODUCT USED FOR UNKNOWN INDICATION
  6. L-THYROX [Concomitant]
     Indication: PRODUCT USED FOR UNKNOWN INDICATION
  7. METOPROLOL SUCCINATE [Concomitant]
     Indication: PRODUCT USED FOR UNKNOWN INDICATION
  8. NOVOMIX [Concomitant]
     Indication: PRODUCT USED FOR UNKNOWN INDICATION
  9. LERCANIDIPINE [Concomitant]
     Indication: PRODUCT USED FOR UNKNOWN INDICATION
  10. SIMVASTATIN [Concomitant]
     Indication: PRODUCT USED FOR UNKNOWN INDICATION
  11. ARCOXIA [Concomitant]
     Indication: PRODUCT USED FOR UNKNOWN INDICATION
  12. NOVALGIN [Concomitant]
     Indication: PRODUCT USED FOR UNKNOWN INDICATION
  13. CITALOPRAM HYDROBROMIDE [Concomitant]
     Indication: PRODUCT USED FOR UNKNOWN INDICATION
  14. SITAGLIPTIN [Concomitant]
     Indication: PRODUCT USED FOR UNKNOWN INDICATION

REACTIONS (4)
  - AGGRESSION [None]
  - DELUSION [None]
  - DISORIENTATION [None]
  - HALLUCINATION [None]
